FAERS Safety Report 4816445-1 (Version None)
Quarter: 2005Q4

REPORT INFORMATION
  Report Type: 
  Country: None (occurrence: None)
  Receive Date: 20051028
  Receipt Date: 20051021
  Transmission Date: 20060501
  Serious: No
  Sender: FDA-Public Use
  Company Number: USA-2005-0021250

PATIENT
  Age: 56 Year
  Sex: Female

DRUGS (3)
  1. CEFDITOREN PIVOXIL (SIMILAR TO NDA 21-222) (CEFDITOREN PIVOXIL) OTHER [Suspect]
     Indication: ANTIBIOTIC PROPHYLAXIS
     Dosage: 300 MG, DAILY, ORAL
     Route: 048
     Dates: start: 20050819, end: 20050821
  2. LOXONIN (LOXOPROFEN SODIUM) [Suspect]
     Indication: DENTAL CARIES
     Dosage: 60 MG, DAILY, ORAL
     Route: 048
     Dates: start: 20050819, end: 20050821
  3. NEOSTELINGREEN (BENZETHONIUM CHLORIDE) [Suspect]
     Dosage: BUCCAL
     Route: 002
     Dates: start: 20050819, end: 20050823

REACTIONS (2)
  - ANGIONEUROTIC OEDEMA [None]
  - POST PROCEDURAL COMPLICATION [None]
